FAERS Safety Report 22121769 (Version 1)
Quarter: 2023Q1

REPORT INFORMATION
  Report Type: Spontaneous
  Country: US (occurrence: US)
  Receive Date: 20230321
  Receipt Date: 20230321
  Transmission Date: 20230417
  Serious: No
  Sender: FDA-Public Use
  Company Number: US-PIERREL S.P.A.-2023PIR00004

PATIENT
  Sex: Male
  Weight: 49.887 kg

DRUGS (4)
  1. ORABLOC [Suspect]
     Active Substance: ARTICAINE HYDROCHLORIDE\EPINEPHRINE BITARTRATE
     Indication: Dental local anaesthesia
     Dosage: UNK
     Route: 004
     Dates: start: 2022, end: 2022
  2. ORABLOC [Suspect]
     Active Substance: ARTICAINE HYDROCHLORIDE\EPINEPHRINE BITARTRATE
     Dosage: UNK
     Route: 004
     Dates: start: 2022, end: 2022
  3. ORABLOC [Suspect]
     Active Substance: ARTICAINE HYDROCHLORIDE\EPINEPHRINE BITARTRATE
     Dosage: UNK
     Route: 004
     Dates: start: 2022, end: 2022
  4. ORABLOC [Suspect]
     Active Substance: ARTICAINE HYDROCHLORIDE\EPINEPHRINE BITARTRATE
     Dosage: 1.4 ML
     Route: 004
     Dates: start: 20221212, end: 20221212

REACTIONS (1)
  - Therapeutic product effect delayed [Recovered/Resolved]

NARRATIVE: CASE EVENT DATE: 20220101
